FAERS Safety Report 9655060 (Version 1)
Quarter: 2013Q4

REPORT INFORMATION
  Report Type: Spontaneous
  Country: US (occurrence: US)
  Receive Date: 20131029
  Receipt Date: 20131029
  Transmission Date: 20140711
  Serious: Yes (Death, Other)
  Sender: FDA-Public Use
  Company Number: US-NAPPMUNDI-USA-2012-0094064

PATIENT
  Age: 18 Year
  Sex: Male

DRUGS (2)
  1. OXYCODONE HYDROCHLORIDE (SIMILAR TO NDA 22-272) [Suspect]
     Indication: DRUG ABUSE
     Route: 048
  2. FENTANYL [Suspect]
     Indication: DRUG ABUSE
     Route: 048

REACTIONS (2)
  - Overdose [Fatal]
  - Drug abuse [Unknown]
